FAERS Safety Report 6176500-3 (Version None)
Quarter: 2009Q2

REPORT INFORMATION
  Report Type: 
  Country: None (occurrence: None)
  Receive Date: 20090501
  Receipt Date: 20090423
  Transmission Date: 20091009
  Serious: Yes (Other)
  Sender: FDA-Public Use
  Company Number: PHHY2009FR08272

PATIENT
  Sex: Female
  Weight: 50 kg

DRUGS (8)
  1. ACLASTA [Suspect]
     Indication: OSTEOPOROSIS
     Dosage: UNK
     Dates: start: 20090212
  2. LEVOTHYROXINE SODIUM [Concomitant]
     Dosage: UNK
     Dates: start: 20000101
  3. VECTARION [Concomitant]
     Dosage: UNK
     Dates: start: 20000101
  4. SERMION [Concomitant]
     Dosage: UNK
     Dates: start: 20000101
  5. TOCO [Concomitant]
     Dosage: UNK
     Dates: start: 20000101
  6. ALDACTAZINE [Concomitant]
     Dosage: UNK
     Dates: start: 20000101
  7. LORAZEPAM [Concomitant]
     Dosage: UNK
     Dates: start: 20000101
  8. SPASFON [Concomitant]
     Dosage: UNK
     Dates: start: 20000101

REACTIONS (8)
  - ARTHRALGIA [None]
  - BACK PAIN [None]
  - FATIGUE [None]
  - MICTURITION DISORDER [None]
  - NAUSEA [None]
  - PRURITUS [None]
  - RASH [None]
  - VASCULITIS [None]
